FAERS Safety Report 16702129 (Version 4)
Quarter: 2022Q1

REPORT INFORMATION
  Report Type: Spontaneous
  Country: US (occurrence: US)
  Receive Date: 20190814
  Receipt Date: 20220120
  Transmission Date: 20220423
  Serious: Yes (Death)
  Sender: FDA-Public Use
  Company Number: US-PFIZER INC-2019344011

PATIENT
  Age: 86 Year
  Sex: Female

DRUGS (2)
  1. EUCRISA [Suspect]
     Active Substance: CRISABOROLE
     Indication: Dermatitis atopic
     Dosage: UNK, 2X/DAY (APPLY TO AFFECTED AREA)
     Route: 061
  2. EUCRISA [Suspect]
     Active Substance: CRISABOROLE
     Indication: Eczema

REACTIONS (2)
  - Death [Fatal]
  - Therapeutic product effect incomplete [Unknown]

NARRATIVE: CASE EVENT DATE: 20211227
